FAERS Safety Report 15564830 (Version 4)
Quarter: 2019Q4

REPORT INFORMATION
  Report Type: Spontaneous
  Country: US (occurrence: US)
  Receive Date: 20181030
  Receipt Date: 20191023
  Transmission Date: 20200122
  Serious: No
  Sender: FDA-Public Use
  Company Number: US-PFIZER INC-2018437762

PATIENT
  Age: 60 Year
  Sex: Female
  Weight: 75.75 kg

DRUGS (4)
  1. IBRANCE [Suspect]
     Active Substance: PALBOCICLIB
     Dosage: 100 MG, FOR 21 DAYS OFF 7 FOR DAYS
     Route: 048
  2. PRISTIQ EXTENDED-RELEASE [Concomitant]
     Active Substance: DESVENLAFAXINE SUCCINATE
     Indication: DEPRESSION
     Dosage: 100 MG, DAILY
  3. FEMARA [Concomitant]
     Active Substance: LETROZOLE
     Dosage: UNK
  4. IBRANCE [Suspect]
     Active Substance: PALBOCICLIB
     Indication: BREAST CANCER METASTATIC
     Dosage: 125 MG, 21 DAYS ON AND 7 DAYS OFF
     Dates: start: 2015

REACTIONS (10)
  - Nasopharyngitis [Unknown]
  - Sinus congestion [Unknown]
  - Sinusitis [Recovered/Resolved]
  - Conjunctivitis [Recovered/Resolved]
  - Pharyngeal erythema [Recovered/Resolved]
  - Ear infection [Not Recovered/Not Resolved]
  - Neoplasm progression [Not Recovered/Not Resolved]
  - Pyrexia [Recovered/Resolved]
  - White blood cell count decreased [Unknown]
  - Ear disorder [Unknown]

NARRATIVE: CASE EVENT DATE: 201810
